FAERS Safety Report 6188152-7 (Version None)
Quarter: 2009Q2

REPORT INFORMATION
  Report Type: 
  Country: None (occurrence: None)
  Receive Date: 20090513
  Receipt Date: 20080821
  Transmission Date: 20091009
  Serious: No
  Sender: FDA-Public Use
  Company Number: A0743944A

PATIENT
  Age: 89 Year
  Sex: Female

DRUGS (8)
  1. DYNACIRC CR [Suspect]
     Indication: HYPERTENSION
     Dosage: 5MG PER DAY
     Route: 048
     Dates: start: 20080601
  2. DIOVAN [Concomitant]
  3. HYDRALAZINE HCL [Concomitant]
  4. CATAPRES [Concomitant]
  5. COREG [Concomitant]
  6. LIPITOR [Concomitant]
  7. UNKNOWN MEDICATION [Concomitant]
  8. INSULIN [Concomitant]

REACTIONS (2)
  - DIZZINESS [None]
  - HEAD DISCOMFORT [None]
